FAERS Safety Report 6985540-3 (Version None)
Quarter: 2010Q3

REPORT INFORMATION
  Report Type: 
  Country: None (occurrence: None)
  Receive Date: 20100915
  Receipt Date: 20100901
  Transmission Date: 20110219
  Serious: Yes (Other)
  Sender: FDA-Public Use
  Company Number: US-JNJFOC-NSADSS2002032972

PATIENT
  Sex: Female

DRUGS (18)
  1. RISPERDAL [Suspect]
     Indication: PRODUCT USED FOR UNKNOWN INDICATION
     Dosage: NIGHTLY
     Route: 065
  2. RISPERDAL [Suspect]
     Dosage: 1-2 MG NIGHTLY
     Route: 065
  3. RISPERDAL [Suspect]
     Dosage: NIGHTLY
     Route: 065
  4. RISPERDAL [Suspect]
     Dosage: ONE-HALF TABLET (STRENGTH UNSPECIFIED)
     Route: 065
  5. RISPERDAL [Suspect]
     Dosage: NIGHTLY FOR ONE WEEK, THEN DISCONTINUED
     Route: 065
  6. ZOLOFT [Concomitant]
  7. ATIVAN [Concomitant]
  8. LOTENSIN HCT [Concomitant]
     Dosage: UNSPECIFIED LOWER DOSE
  9. LOTENSIN HCT [Concomitant]
     Dosage: 10 MG/12.5 MG
  10. SONATA [Concomitant]
     Dosage: AT BEDTIME AS NEEDED FOR SLEEP
  11. CHLORPHENIRAMINE MALEATE [Concomitant]
  12. PSEUDOEPHEDRINE [Concomitant]
  13. NAPROXEN [Concomitant]
  14. SEROQUEL [Concomitant]
     Dosage: NIGHTLY
  15. SEROQUEL [Concomitant]
     Dosage: FOR FOUR WEEKS, THEN INCREASE TO 100 MG NIGHTLY
  16. SEROQUEL [Concomitant]
     Dosage: NIGHTLY
  17. COGENTIN [Concomitant]
  18. ZYPREXA [Concomitant]
     Dosage: NIGHTLY
     Route: 048

REACTIONS (10)
  - DEMENTIA [None]
  - DIZZINESS [None]
  - EXTRAPYRAMIDAL DISORDER [None]
  - HALLUCINATION [None]
  - INSOMNIA [None]
  - MAJOR DEPRESSION [None]
  - NEUROLEPTIC MALIGNANT SYNDROME [None]
  - SUICIDAL IDEATION [None]
  - TARDIVE DYSKINESIA [None]
  - URINARY TRACT INFECTION [None]
